FAERS Safety Report 10384704 (Version 1)
Quarter: 2014Q1

REPORT INFORMATION
  Report Type: Spontaneous
  Country: US (occurrence: None)
  Receive Date: 20140306
  Receipt Date: 20140306
  Transmission Date: 20141002
  Serious: Yes (Hospitalization, Other)
  Sender: FDA-Public Use
  Company Number: 163-21880-13120580

PATIENT
  Age: 73 Year
  Sex: Male

DRUGS (2)
  1. REVLIMID (LENALIDOMIDE) (5 MILLIGRAM, CAPSULES) [Suspect]
     Indication: CHRONIC LYMPHOCYTIC LEUKAEMIA
     Dosage: 21 IN 28 D
     Route: 048
     Dates: start: 20131125
  2. RED BLOOD CELLS (RED BLOOD CELLS) (INJECTION FOR INFUSION) [Concomitant]

REACTIONS (2)
  - Pain [None]
  - Full blood count decreased [None]
